FAERS Safety Report 7311954-8 (Version None)
Quarter: 2011Q1

REPORT INFORMATION
  Report Type: 
  Country: None (occurrence: None)
  Receive Date: 20110214
  Receipt Date: 20110204
  Transmission Date: 20110831
  Serious: Yes (Hospitalization, Other)
  Sender: FDA-Public Use
  Company Number: JHP201100025

PATIENT

DRUGS (1)
  1. DANTRIUM [Suspect]

REACTIONS (1)
  - PNEUMONIA ASPIRATION [None]
